FAERS Safety Report 4460990-8 (Version None)
Quarter: 2004Q3

REPORT INFORMATION
  Report Type: 
  Country: None (occurrence: None)
  Receive Date: 20040928
  Receipt Date: 20040623
  Transmission Date: 20050211
  Serious: No
  Sender: FDA-Public Use
  Company Number: US-GLAXOSMITHKLINE-A0515726A

PATIENT
  Age: 35 Year
  Sex: Female

DRUGS (9)
  1. ADVAIR DISKUS 100/50 [Suspect]
     Indication: ASTHMA
     Dosage: 250MG TWICE PER DAY
     Route: 055
     Dates: start: 20020101, end: 20040101
  2. SEREVENT [Suspect]
     Indication: ASTHMA
     Dosage: 50MCG TWICE PER DAY
     Route: 055
     Dates: start: 20040101, end: 20040623
  3. OXYCONTIN [Concomitant]
  4. ROXICODONE [Concomitant]
  5. SOMA [Concomitant]
  6. ZANTAC [Concomitant]
  7. ADVIL [Concomitant]
  8. XANAX [Concomitant]
  9. ALBUTEROL [Concomitant]
     Route: 055

REACTIONS (2)
  - DRUG INEFFECTIVE [None]
  - ORAL CANDIDIASIS [None]
